FAERS Safety Report 9850819 (Version 1)
Quarter: 2014Q1

REPORT INFORMATION
  Report Type: Spontaneous
  Country: US (occurrence: US)
  Receive Date: 20140128
  Receipt Date: 20140128
  Transmission Date: 20141002
  Serious: Yes (Hospitalization)
  Sender: FDA-Public Use
  Company Number: US-BRISTOL-MYERS SQUIBB COMPANY-20053831

PATIENT
  Age: 54 Year
  Sex: Male
  Weight: 119.27 kg

DRUGS (3)
  1. REYATAZ [Suspect]
     Indication: HIV INFECTION
  2. TRUVADA [Suspect]
     Indication: HIV INFECTION
  3. NORVIR [Suspect]
     Indication: HIV INFECTION

REACTIONS (3)
  - Chest pain [Unknown]
  - Chest discomfort [Unknown]
  - Blood glucose fluctuation [Unknown]
